FAERS Safety Report 9891270 (Version 3)
Quarter: 2014Q4

REPORT INFORMATION
  Report Type: Spontaneous
  Country: US (occurrence: US)
  Receive Date: 20140212
  Receipt Date: 20141117
  Transmission Date: 20150529
  Serious: Yes (Death, Hospitalization, Other)
  Sender: FDA-Public Use
  Company Number: US-BAYER-2014-019783

PATIENT
  Age: 42 Year
  Sex: Male

DRUGS (1)
  1. STIVARGA [Suspect]
     Active Substance: REGORAFENIB
     Indication: COLON CANCER
     Dosage: 160 MG, QD, 40 MG TABLET 4 QD X21 DAYS AND OFF 7
     Route: 048
     Dates: end: 20131217

REACTIONS (3)
  - Death [Fatal]
  - Aphagia [None]
  - Drug ineffective [None]

NARRATIVE: CASE EVENT DATE: 20140117
